FAERS Safety Report 13102827 (Version 1)
Quarter: 2017Q1

REPORT INFORMATION
  Report Type: Spontaneous
  Country: US (occurrence: US)
  Receive Date: 20170110
  Receipt Date: 20170110
  Transmission Date: 20170428
  Serious: Yes (Hospitalization)
  Sender: FDA-Public Use
  Company Number: US-MAYNE PHARMA-2016MYN000723

PATIENT
  Sex: Male

DRUGS (10)
  1. DOCUSATE [Concomitant]
     Active Substance: DOCUSATE
  2. OLANZAPINE. [Concomitant]
     Active Substance: OLANZAPINE
  3. PROMETHAZINE [Concomitant]
     Active Substance: PROMETHAZINE\PROMETHAZINE HYDROCHLORIDE
  4. HALOPERIDOL. [Concomitant]
     Active Substance: HALOPERIDOL
  5. BENZTROPINE [Concomitant]
     Active Substance: BENZTROPINE
  6. FOLIC ACID. [Concomitant]
     Active Substance: FOLIC ACID
  7. CLOZAPINE. [Suspect]
     Active Substance: CLOZAPINE
     Indication: PRODUCT USED FOR UNKNOWN INDICATION
     Dosage: 300 MG, QHS
     Dates: start: 20161007
  8. ATROPINE OPHTHALMIC [Concomitant]
  9. LITHIUM. [Concomitant]
     Active Substance: LITHIUM
  10. DEPAKOTE [Concomitant]
     Active Substance: DIVALPROEX SODIUM

REACTIONS (4)
  - Nausea [Unknown]
  - Diarrhoea [Unknown]
  - Enteritis infectious [Unknown]
  - Vomiting [Unknown]

NARRATIVE: CASE EVENT DATE: 2016
